FAERS Safety Report 5159676-6 (Version None)
Quarter: 2006Q4

REPORT INFORMATION
  Report Type: 
  Country: None (occurrence: None)
  Receive Date: 20061129
  Receipt Date: 20060914
  Transmission Date: 20070319
  Serious: Yes (Disabling)
  Sender: FDA-Public Use
  Company Number: BE-ROCHE-463400

PATIENT
  Age: 17 Year
  Sex: Male
  Weight: 83 kg

DRUGS (1)
  1. ROACCUTANE [Suspect]
     Indication: ACNE
     Route: 048
     Dates: start: 20050117, end: 20050930

REACTIONS (1)
  - HYPERHIDROSIS [None]
